FAERS Safety Report 12743468 (Version 2)
Quarter: 2016Q4

REPORT INFORMATION
  Report Type: Spontaneous
  Country: DE (occurrence: DE)
  Receive Date: 20160914
  Receipt Date: 20161014
  Transmission Date: 20170207
  Serious: Yes (Other)
  Sender: FDA-Public Use
  Company Number: DE-TEVA-690745GER

PATIENT
  Age: 47 Year
  Sex: Male

DRUGS (1)
  1. COPAXONE [Suspect]
     Active Substance: GLATIRAMER ACETATE
     Indication: MULTIPLE SCLEROSIS
     Route: 030
     Dates: start: 20100304, end: 20160513

REACTIONS (2)
  - Drug administered at inappropriate site [Unknown]
  - Necrosis [Recovered/Resolved]

NARRATIVE: CASE EVENT DATE: 201607
